FAERS Safety Report 5495920-3 (Version None)
Quarter: 2007Q4

REPORT INFORMATION
  Report Type: 
  Country: None (occurrence: None)
  Receive Date: 20071025
  Receipt Date: 20070222
  Transmission Date: 20080405
  Serious: No
  Sender: FDA-Public Use
  Company Number: A0627468A

PATIENT
  Age: 38 Year
  Sex: Female

DRUGS (4)
  1. ADVAIR DISKUS 100/50 [Suspect]
     Indication: ASTHMA
     Dosage: 1PUFF TWICE PER DAY
     Route: 055
     Dates: start: 20051101
  2. SINGULAIR [Concomitant]
     Indication: ASTHMA
     Route: 048
     Dates: start: 20051001
  3. ALBUTEROL [Concomitant]
     Indication: ASTHMA
     Route: 048
     Dates: start: 20051001
  4. NASACORT [Concomitant]
     Route: 045
     Dates: start: 20060201

REACTIONS (2)
  - DRUG INEFFECTIVE [None]
  - PHARMACEUTICAL PRODUCT COMPLAINT [None]
